FAERS Safety Report 5060427-4 (Version None)
Quarter: 2006Q2

REPORT INFORMATION
  Report Type: 
  Country: None (occurrence: None)
  Receive Date: 20060630
  Receipt Date: 20060407
  Transmission Date: 20061013
  Serious: Yes (Hospitalization)
  Sender: FDA-Public Use
  Company Number: 443925

PATIENT
  Age: 77 Year
  Sex: Male

DRUGS (3)
  1. CELLCEPT [Suspect]
     Indication: MYASTHENIA GRAVIS
     Dosage: 500 MG 2 PER DAY ORAL
     Route: 048
     Dates: start: 20060315
  2. MESTINON [Concomitant]
  3. UNIPHYL [Concomitant]

REACTIONS (1)
  - PNEUMONIA [None]
